FAERS Safety Report 24388309 (Version 1)
Quarter: 2024Q4

REPORT INFORMATION
  Report Type: Spontaneous
  Country: BR (occurrence: BR)
  Receive Date: 20241002
  Receipt Date: 20241002
  Transmission Date: 20250115
  Serious: Yes (Hospitalization)
  Sender: BIOMARIN
  Company Number: BR-BIOMARINAP-BR-2024-160840

PATIENT

DRUGS (1)
  1. KUVAN [Suspect]
     Active Substance: SAPROPTERIN DIHYDROCHLORIDE
     Indication: Phenylketonuria
     Route: 065

REACTIONS (1)
  - Anaemia [Unknown]
